FAERS Safety Report 17127471 (Version 3)
Quarter: 2019Q4

REPORT INFORMATION
  Report Type: Report from Study
  Country: US (occurrence: US)
  Receive Date: 20191209
  Receipt Date: 20191226
  Transmission Date: 20200122
  Serious: Yes (Other)
  Sender: FDA-Public Use
  Company Number: US-GLAXOSMITHKLINE-US2019TSO212753

PATIENT
  Age: 78 Year
  Sex: Female

DRUGS (2)
  1. NIRAPARIB [Suspect]
     Active Substance: NIRAPARIB
     Indication: NEOPLASM MALIGNANT
     Dosage: 300 MG, QD
     Route: 048
     Dates: start: 20191114
  2. NIRAPARIB [Suspect]
     Active Substance: NIRAPARIB
     Dosage: 200 MG, QD
     Route: 048

REACTIONS (11)
  - Malaise [Unknown]
  - Eating disorder [Unknown]
  - Weight decreased [Not Recovered/Not Resolved]
  - Disorientation [Unknown]
  - Gastrointestinal sounds abnormal [Unknown]
  - Fatigue [Unknown]
  - Product use in unapproved indication [Unknown]
  - Gait disturbance [Unknown]
  - Nonspecific reaction [Unknown]
  - Hallucination [Unknown]
  - Asthenia [Unknown]

NARRATIVE: CASE EVENT DATE: 20191130
